FAERS Safety Report 9639728 (Version 4)
Quarter: 2014Q2

REPORT INFORMATION
  Report Type: Report from Study
  Country: FR (occurrence: FR)
  Receive Date: 20131023
  Receipt Date: 20140613
  Transmission Date: 20141212
  Serious: Yes (Hospitalization)
  Sender: FDA-Public Use
  Company Number: FR-BRISTOL-MYERS SQUIBB COMPANY-19582394

PATIENT
  Age: 38 Year
  Sex: Male

DRUGS (6)
  1. PACLITAXEL [Suspect]
     Indication: NON-SMALL CELL LUNG CANCER
     Dosage: RECENT DOSE:20SEP13
     Route: 042
     Dates: start: 20130912
  2. CARBOPLATIN [Suspect]
     Indication: NON-SMALL CELL LUNG CANCER
     Dosage: RECENT DOSE:12SEP13
     Route: 042
     Dates: start: 20130912
  3. BEVACIZUMAB [Suspect]
     Indication: NON-SMALL CELL LUNG CANCER
     Route: 042
     Dates: start: 20130912
  4. CONTRAMAL [Concomitant]
     Indication: CHEST PAIN
     Route: 048
     Dates: start: 201304
  5. DOLIPRANE [Concomitant]
     Indication: CHEST PAIN
     Route: 048
     Dates: start: 201304
  6. PRIMPERAN [Concomitant]
     Indication: NAUSEA
     Route: 048
     Dates: start: 20130915

REACTIONS (2)
  - Rash [Recovered/Resolved]
  - Anaphylactic shock [Recovered/Resolved]
